FAERS Safety Report 19434125 (Version 2)
Quarter: 2022Q1

REPORT INFORMATION
  Report Type: Spontaneous
  Country: GB (occurrence: GB)
  Receive Date: 20210618
  Receipt Date: 20220201
  Transmission Date: 20220423
  Serious: Yes (Life-Threatening, Other)
  Sender: FDA-Public Use
  Company Number: None

PATIENT
  Age: 34 Year
  Sex: Male

DRUGS (33)
  1. DULOXETINE HYDROCHLORIDE [Suspect]
     Active Substance: DULOXETINE HYDROCHLORIDE
     Indication: Depressed mood
     Dosage: UNK UNK, UNKNOWN
     Route: 065
     Dates: start: 20210329, end: 20210608
  2. DULOXETINE HYDROCHLORIDE [Suspect]
     Active Substance: DULOXETINE HYDROCHLORIDE
     Indication: Pain
  3. AMITRIPTYLINE [Concomitant]
     Active Substance: AMITRIPTYLINE
     Dosage: 3 DOSAGE FORM, DAILY
     Route: 065
     Dates: start: 20210426
  4. AMITRIPTYLINE [Concomitant]
     Active Substance: AMITRIPTYLINE
     Dosage: 3 DOSAGE FORM
     Route: 065
     Dates: start: 20210315
  5. AMITRIPTYLINE [Concomitant]
     Active Substance: AMITRIPTYLINE
     Dosage: 3 DOSAGE FORM
     Route: 065
     Dates: start: 20210413
  6. AMITRIPTYLINE [Concomitant]
     Active Substance: AMITRIPTYLINE
     Dosage: 3 DOSAGE FORM
     Route: 065
     Dates: start: 20210329
  7. AMITRIPTYLINE [Concomitant]
     Active Substance: AMITRIPTYLINE
     Dosage: 3 DOSAGE FORM
     Route: 065
     Dates: start: 20210506
  8. AMITRIPTYLINE [Concomitant]
     Active Substance: AMITRIPTYLINE
     Dosage: 3 DOSAGE FORM
     Route: 065
     Dates: start: 20210602
  9. AMITRIPTYLINE [Concomitant]
     Active Substance: AMITRIPTYLINE
     Dosage: 3 DOSAGE FORM
     Route: 065
     Dates: start: 20210520
  10. DULOXETINE [Concomitant]
     Active Substance: DULOXETINE
     Dosage: 30 MG, DAILY
     Route: 065
     Dates: start: 20210506
  11. DULOXETINE [Concomitant]
     Active Substance: DULOXETINE
     Dosage: 60 DOSAGE FORM, DAILY
     Route: 065
     Dates: start: 20210426
  12. LANSOPRAZOLE [Concomitant]
     Active Substance: LANSOPRAZOLE
     Dosage: 1 DOSAGE FORM, DAILY
     Route: 065
     Dates: start: 20210426
  13. LANSOPRAZOLE [Concomitant]
     Active Substance: LANSOPRAZOLE
     Dosage: 1 DOSAGE FORM
     Route: 065
     Dates: start: 20210315
  14. LANSOPRAZOLE [Concomitant]
     Active Substance: LANSOPRAZOLE
     Dosage: 1 DOSAGE FORM
     Route: 065
     Dates: start: 20210413
  15. LANSOPRAZOLE [Concomitant]
     Active Substance: LANSOPRAZOLE
     Dosage: 1 DOSAGE FORM
     Route: 065
     Dates: start: 20210520
  16. NAPROXEN [Concomitant]
     Active Substance: NAPROXEN
     Dosage: 1 DOSAGE FORM, DAILY
     Dates: start: 20210407
  17. NAPROXEN [Concomitant]
     Active Substance: NAPROXEN
     Dosage: 1 DOSAGE FORM, DAILY
     Route: 065
     Dates: start: 20210315
  18. NAPROXEN [Concomitant]
     Active Substance: NAPROXEN
     Dosage: 1 DOSAGE FORM, DAILY
     Route: 065
     Dates: start: 20210602
  19. NAPROXEN [Concomitant]
     Active Substance: NAPROXEN
     Dosage: 1 DOSAGE FORM, DAILY
     Route: 065
     Dates: start: 20210426
  20. NAPROXEN [Concomitant]
     Active Substance: NAPROXEN
     Dosage: 1 DOSAGE FORM, DAILY
     Route: 065
     Dates: start: 20210520
  21. NAPROXEN [Concomitant]
     Active Substance: NAPROXEN
     Dosage: 1 DOSAGE FORM, DAILY
     Route: 065
     Dates: start: 20210506
  22. NAPROXEN [Concomitant]
     Active Substance: NAPROXEN
     Dosage: 1 DOSAGE FORM, DAILY
     Route: 065
     Dates: start: 20210413
  23. NAPROXEN [Concomitant]
     Active Substance: NAPROXEN
     Dosage: 500 MG, BID
     Route: 065
     Dates: start: 20210329
  24. PREGABALIN [Concomitant]
     Active Substance: PREGABALIN
     Dosage: 1 MG, TID
     Route: 065
     Dates: start: 20210426
  25. PREGABALIN [Concomitant]
     Active Substance: PREGABALIN
     Dosage: 1 DOSAGE FORM, TID
     Route: 065
     Dates: start: 20210413
  26. PREGABALIN [Concomitant]
     Active Substance: PREGABALIN
     Dosage: 1 DOSAGE FORM, TID
     Route: 065
     Dates: start: 20210329
  27. PREGABALIN [Concomitant]
     Active Substance: PREGABALIN
     Dosage: 1 DOSAGE FORM, TID
     Route: 065
     Dates: start: 20210602
  28. PREGABALIN [Concomitant]
     Active Substance: PREGABALIN
     Dosage: 1 DOSAGE FORM, TID
     Route: 065
     Dates: start: 20210520
  29. PREGABALIN [Concomitant]
     Active Substance: PREGABALIN
     Dosage: 200 MG, TID
     Route: 065
     Dates: start: 20210315
  30. PREGABALIN [Concomitant]
     Active Substance: PREGABALIN
     Dosage: 1 DOSAGE FORM, TID
     Route: 065
     Dates: start: 20210506
  31. TRAZODONE [Concomitant]
     Active Substance: TRAZODONE HYDROCHLORIDE
     Dosage: 150 MG, EACH EVENING
     Route: 065
     Dates: start: 20210602
  32. ZOPICLONE [Concomitant]
     Active Substance: ZOPICLONE
     Dosage: 7.5 MG, EACH EVENING
     Route: 065
     Dates: start: 20210413
  33. ZOPICLONE [Concomitant]
     Active Substance: ZOPICLONE
     Dosage: 1 DOSAGE FORM, EACH EVENING
     Route: 065
     Dates: start: 20210426

REACTIONS (3)
  - Increased tendency to bruise [Recovering/Resolving]
  - Alanine aminotransferase increased [Recovered/Resolved]
  - Aspartate aminotransferase increased [Recovered/Resolved]

NARRATIVE: CASE EVENT DATE: 20210426
